FAERS Safety Report 7729905-0 (Version None)
Quarter: 2011Q3

REPORT INFORMATION
  Report Type: 
  Country: None (occurrence: None)
  Receive Date: 20110906
  Receipt Date: 20110831
  Transmission Date: 20111222
  Serious: Yes (Hospitalization, Other)
  Sender: FDA-Public Use
  Company Number: US-ABBOTT-11P-163-0839478-00

PATIENT
  Sex: Male
  Weight: 79.45 kg

DRUGS (5)
  1. HUMIRA [Suspect]
     Route: 058
     Dates: start: 20110711
  2. AMLODIPINE BESYLATE AND BENAZEPRIL HCL [Concomitant]
     Indication: HYPERTENSION
     Dosage: 10/40 MG
     Route: 048
  3. UNKNOWN MEDICATION [Concomitant]
     Indication: SEASONAL ALLERGY
     Route: 058
  4. LIPITOR [Concomitant]
     Indication: BLOOD CHOLESTEROL INCREASED
     Route: 048
  5. HUMIRA [Suspect]
     Indication: PSORIASIS
     Route: 058
     Dates: start: 20060101, end: 20110627

REACTIONS (16)
  - PSORIASIS [None]
  - TENDERNESS [None]
  - MENISCUS LESION [None]
  - CHRONIC OBSTRUCTIVE PULMONARY DISEASE [None]
  - PRURITUS [None]
  - MEMORY IMPAIRMENT [None]
  - CEREBROVASCULAR ACCIDENT [None]
  - SQUAMOUS CELL CARCINOMA [None]
  - HYPOTHYROIDISM [None]
  - ACROCHORDON [None]
  - CARPAL TUNNEL SYNDROME [None]
  - NEPHROPATHY [None]
  - PRURITUS GENITAL [None]
  - DRUG INEFFECTIVE [None]
  - MASS [None]
  - HAEMORRHAGE [None]
